FAERS Safety Report 9917565 (Version 2)
Quarter: 2014Q2

REPORT INFORMATION
  Report Type: Spontaneous
  Country: DK (occurrence: DE)
  Receive Date: 20140221
  Receipt Date: 20140527
  Transmission Date: 20141212
  Serious: Yes (Other)
  Sender: FDA-Public Use
  Company Number: DE-FRI-1000054368

PATIENT
  Age: 42 Year
  Sex: Female

DRUGS (2)
  1. CITALOPRAM [Suspect]
     Dosage: 20 MG
     Route: 048
  2. ASTHMA-SPRAY [Concomitant]
     Route: 055

REACTIONS (4)
  - Gestational diabetes [Unknown]
  - Foetal monitoring abnormal [Unknown]
  - Hydrops foetalis [Unknown]
  - Caesarean section [Unknown]
